FAERS Safety Report 6013688-9 (Version None)
Quarter: 2008Q4

REPORT INFORMATION
  Report Type: 
  Country: None (occurrence: None)
  Receive Date: 20081219
  Receipt Date: 20081209
  Transmission Date: 20090506
  Serious: Yes (Hospitalization)
  Sender: FDA-Public Use
  Company Number: A0737030B

PATIENT
  Age: 46 Year
  Sex: Female
  Weight: 63.5 kg

DRUGS (5)
  1. LAPATINIB [Suspect]
     Dosage: 1250MG PER DAY
     Route: 048
     Dates: start: 20080520
  2. CAPECITABINE [Suspect]
     Dosage: 3600MG PER DAY
     Route: 048
     Dates: start: 20080520
  3. CAPOTEN [Concomitant]
     Indication: HYPERTENSION
     Dosage: 25U TWICE PER DAY
     Route: 048
  4. DEPAKENE [Concomitant]
     Indication: METASTASES TO CENTRAL NERVOUS SYSTEM
     Dosage: 500U PER DAY
     Route: 048
     Dates: start: 20080521
  5. ZOMETA [Concomitant]
     Dosage: 4U EVERY 3 WEEKS
     Route: 042

REACTIONS (1)
  - SYNCOPE [None]
